FAERS Safety Report 22956167 (Version 2)
Quarter: 2023Q4

REPORT INFORMATION
  Report Type: Spontaneous
  Country: GB (occurrence: GB)
  Receive Date: 20230919
  Receipt Date: 20231102
  Transmission Date: 20240110
  Serious: Yes (Other)
  Sender: FDA-Public Use
  Company Number: GB-MHRA-TPP4682207C6349489YC1692714930329

PATIENT
  Age: 67 Year
  Sex: Male
  Weight: 92 kg

DRUGS (16)
  1. EZETIMIBE [Suspect]
     Active Substance: EZETIMIBE
     Indication: Product used for unknown indication
     Dosage: 10 MILLIGRAM, ONCE A DAY
     Route: 065
     Dates: start: 20230810
  2. AMITRIPTYLINE [Concomitant]
     Active Substance: AMITRIPTYLINE
     Indication: Pain
     Dosage: NIGHT
     Route: 065
     Dates: start: 20230327
  3. ASPIRIN [Concomitant]
     Active Substance: ASPIRIN
     Indication: Product used for unknown indication
     Dosage: 1 DOSAGE FORM, ONCE A DAY
     Route: 065
     Dates: start: 20230327
  4. BETAMETHASONE [Concomitant]
     Active Substance: BETAMETHASONE
     Indication: Product used for unknown indication
     Dosage: 2-3 DROPS TO BE USED IN EACH NOSTRIL TWO TO THR...
     Route: 045
     Dates: start: 20230810
  5. BISOPROLOL [Concomitant]
     Active Substance: BISOPROLOL\BISOPROLOL FUMARATE
     Indication: Facial pain
     Dosage: 1 DOSAGE FORM, ONCE A DAY
     Route: 065
     Dates: start: 20230327
  6. CARBAMAZEPINE [Concomitant]
     Active Substance: CARBAMAZEPINE
     Indication: Facial pain
     Dosage: ONE TO TWO
     Route: 065
     Dates: start: 20230526, end: 20230623
  7. DOXYCYCLINE [Concomitant]
     Active Substance: DOXYCYCLINE
     Indication: Acute sinusitis
     Dosage: (IF PENICILLIN ALLERGY): TAKE T...
     Route: 065
     Dates: start: 20230605, end: 20230610
  8. FENBID [Concomitant]
     Indication: Product used for unknown indication
     Dosage: (IBUPROFEN) APPLY TO THE AFFECTED AREA AND RUB ...
     Route: 065
     Dates: start: 20230726
  9. FEXOFENADINE [Concomitant]
     Active Substance: FEXOFENADINE HYDROCHLORIDE
     Indication: Product used for unknown indication
     Dosage: BEFORE FOOD FOR ITCH...
     Dates: start: 20230627, end: 20230725
  10. FLUTICASONE FUROATE [Concomitant]
     Active Substance: FLUTICASONE FUROATE
     Indication: Product used for unknown indication
     Dosage: TO EACH NOSTRIL
     Route: 045
     Dates: start: 20230627, end: 20230725
  11. NITROGLYCERIN [Concomitant]
     Active Substance: NITROGLYCERIN
     Indication: Product used for unknown indication
     Dosage: SPRAY 1 OR 2 PUFFS
     Route: 060
     Dates: start: 20230327, end: 20230704
  12. OMEPRAZOLE [Concomitant]
     Active Substance: OMEPRAZOLE
     Indication: Product used for unknown indication
     Dosage: 1 DOSAGE FORM, ONCE A DAY
     Route: 065
     Dates: start: 20230327
  13. RAMIPRIL [Concomitant]
     Active Substance: RAMIPRIL
     Indication: Product used for unknown indication
     Dosage: 1 DOSAGE FORM, ONCE A DAY
     Route: 065
     Dates: start: 20230327
  14. ROSUVASTATIN [Concomitant]
     Active Substance: ROSUVASTATIN
     Indication: Product used for unknown indication
     Dosage: 1 DOSAGE FORM, ONCE A DAY
     Route: 065
     Dates: start: 20230327, end: 20230810
  15. TRAMADOL [Concomitant]
     Active Substance: TRAMADOL\TRAMADOL HYDROCHLORIDE
     Indication: Product used for unknown indication
     Dosage: TAKE ONE OR TWO
     Route: 065
     Dates: start: 20230726
  16. ACETAMINOPHEN\CODEINE PHOSPHATE [Concomitant]
     Active Substance: ACETAMINOPHEN\CODEINE PHOSPHATE
     Indication: Analgesic therapy
     Dosage: 1 OR 2 EVERY 4-6 HOURS UP TO 8 IN 24 HOURS.
     Route: 065
     Dates: start: 20230817

REACTIONS (4)
  - Headache [Recovering/Resolving]
  - Myalgia [Recovering/Resolving]
  - Back pain [Recovering/Resolving]
  - Dry mouth [Recovering/Resolving]
